FAERS Safety Report 24203821 (Version 5)
Quarter: 2024Q3

REPORT INFORMATION
  Report Type: Spontaneous
  Country: PT (occurrence: PT)
  Receive Date: 20240813
  Receipt Date: 20240907
  Transmission Date: 20241017
  Serious: Yes (Hospitalization, Other)
  Sender: AUROBINDO
  Company Number: PT-LABALTER-202403731

PATIENT
  Age: 79 Year
  Sex: Female

DRUGS (5)
  1. AZITHROMYCIN [Suspect]
     Active Substance: AZITHROMYCIN
     Indication: Productive cough
     Dosage: UNK
     Route: 065
  2. AZITHROMYCIN [Suspect]
     Active Substance: AZITHROMYCIN
     Indication: Rhinorrhoea
  3. AZITHROMYCIN [Suspect]
     Active Substance: AZITHROMYCIN
     Indication: Rhinitis
  4. APIXABAN [Concomitant]
     Active Substance: APIXABAN
     Indication: Pulmonary embolism
     Dosage: UNK
     Route: 065
  5. APIXABAN [Concomitant]
     Active Substance: APIXABAN
     Indication: Anticoagulant therapy

REACTIONS (10)
  - Immune thrombocytopenia [Recovering/Resolving]
  - Thrombocytopenia [Recovering/Resolving]
  - Melaena [Unknown]
  - Gingival bleeding [Unknown]
  - Gingival oedema [Unknown]
  - Skin lesion [Unknown]
  - Oral blood blister [Unknown]
  - Ecchymosis [Unknown]
  - Platelet count abnormal [Recovered/Resolved]
  - Off label use [Unknown]
